FAERS Safety Report 5358903-X (Version None)
Quarter: 2007Q2

REPORT INFORMATION
  Report Type: 
  Country: None (occurrence: None)
  Receive Date: 20070615
  Receipt Date: 20070605
  Transmission Date: 20071010
  Serious: Yes (Hospitalization, Congenital Anomaly)
  Sender: FDA-Public Use
  Company Number: B0383781A

PATIENT
  Sex: Male
  Weight: 3.2 kg

DRUGS (3)
  1. LAMICTAL [Suspect]
     Dosage: 300MG PER DAY
     Dates: start: 20040616
  2. SPECIAFOLDINE [Suspect]
  3. KEPPRA [Concomitant]
     Dosage: 1500MG PER DAY
     Dates: start: 20041006

REACTIONS (3)
  - DRUG EXPOSURE DURING PREGNANCY [None]
  - PULMONARY ARTERIAL PRESSURE INCREASED [None]
  - VENTRICULAR SEPTAL DEFECT [None]
